FAERS Safety Report 8287440-8 (Version None)
Quarter: 2012Q2

REPORT INFORMATION
  Report Type: 
  Country: None (occurrence: None)
  Receive Date: 20120410
  Receipt Date: 20120410
  Transmission Date: 20120825
  Serious: No
  Sender: FDA-Public Use
  Company Number: None

PATIENT
  Sex: Female
  Weight: 55.3388 kg

DRUGS (1)
  1. LEVOFLOXACIN [Suspect]
     Indication: BACTERIAL INFECTION
     Dosage: 500 MG DAILY I.V. + MOUTH
     Route: 042
     Dates: start: 20120221, end: 20120225

REACTIONS (6)
  - OEDEMA PERIPHERAL [None]
  - JOINT SWELLING [None]
  - DEPRESSED MOOD [None]
  - TENDON DISORDER [None]
  - ARTHRALGIA [None]
  - PAIN IN EXTREMITY [None]
